FAERS Safety Report 13811673 (Version 1)
Quarter: 2017Q3

REPORT INFORMATION
  Report Type: Spontaneous
  Country: US (occurrence: US)
  Receive Date: 20170728
  Receipt Date: 20170728
  Transmission Date: 20171127
  Serious: Yes (Other)
  Sender: FDA-Public Use
  Company Number: US-ROCHE-723793

PATIENT
  Age: 92 Year
  Sex: Female

DRUGS (28)
  1. BYSTOLIC [Concomitant]
     Active Substance: NEBIVOLOL HYDROCHLORIDE
     Dosage: FREQUENCY: QHS,THERAPY DATES:17 NOV 2009,15 FEB 2010,11 MAY 2010,21 JUNE 2010,21 JUL 2010,3 NOV 2010
     Route: 065
     Dates: start: 20090707, end: 20110203
  2. PLAVIX [Concomitant]
     Active Substance: CLOPIDOGREL BISULFATE
     Route: 065
  3. GLIPIZIDE. [Concomitant]
     Active Substance: GLIPIZIDE
     Dosage: THERAPY DATES:17 NOV 2009,15 FEB 2010,11 MAY 2010,21 JUNE 2010,21 JUL 2010,3 NOV 2010
     Route: 065
     Dates: start: 20090707, end: 20101103
  4. OCUVITE [Concomitant]
     Active Substance: VITAMINS
     Dosage: FREQUENCY: QD, THERAPY DATES:17 NOV 2009,15 FEB 2010,11 MAY 2010
     Route: 065
     Dates: start: 20090707, end: 20100511
  5. ASA [Concomitant]
     Active Substance: ASPIRIN
     Dosage: FREQUENCY: Q3M,THERAPY DATES:17 NOV 2009,15 FEB 2010,11 MAY 2010,21 JUNE 2010,21 JUL 2010,3 NOV 2010
     Route: 065
     Dates: start: 20090707, end: 20110203
  6. PRILOSEC [Concomitant]
     Active Substance: OMEPRAZOLE MAGNESIUM
     Dosage: FREQUENCY: QD
     Route: 065
     Dates: start: 20090707, end: 20101103
  7. CITRACAL [Concomitant]
     Active Substance: CALCIUM CITRATE
     Dosage: THERAPY DATES: 21 JUNE 2010,21 JUL 2010,3 NOV 2010
     Route: 065
  8. TYLENOL [Concomitant]
     Active Substance: ACETAMINOPHEN
     Route: 065
  9. LYRICA [Concomitant]
     Active Substance: PREGABALIN
     Dosage: AT NIGHT
     Route: 065
  10. PRILOSEC [Concomitant]
     Active Substance: OMEPRAZOLE MAGNESIUM
     Route: 065
  11. TIMOLOL. [Concomitant]
     Active Substance: TIMOLOL
     Dosage: FREQUENCY: QHS,THERAPY DATES:17 NOV 2009,15 FEB 2010,11 MAY 2010,21 JUNE 2010,21 JUL 2010,3 NOV 2010
     Route: 065
  12. MIRALAX [Concomitant]
     Active Substance: POLYETHYLENE GLYCOL 3350
     Route: 065
  13. LEVOTHYROXINE. [Concomitant]
     Active Substance: LEVOTHYROXINE
     Dosage: FREQUENCY: QAM,THERAPY DATES:17 NOV 2009,15 FEB 2010,11 MAY 2010,21 JUNE 2010,21 JUL 2010,3 NOV 2010
     Route: 065
     Dates: start: 20090707, end: 20110203
  14. DARVOCET [Concomitant]
     Active Substance: ACETAMINOPHEN\PROPOXYPHENE HYDROCHLORIDE
     Dosage: FREQUENCY: 1-2 AT BED TIME, THERAPY DATES:17 NOV 2009,15 FEB 2010
     Route: 065
     Dates: start: 20090707, end: 20100511
  15. XALATAN [Concomitant]
     Active Substance: LATANOPROST
     Dosage: FREQUENCY: QHS,THERAPY DATES:17 NOV 2009,15 FEB 2010,11 MAY 2010,21 JUNE 2010,21 JUL 2010,3 NOV 2010
     Route: 065
  16. VITAMIN D [Concomitant]
     Active Substance: CHOLECALCIFEROL
     Dosage: THERAPY DATES:17 NOV 2009,15 FEB 2010,11 MAY 2010,21 JUNE 2010,21 JUL 2010,3 NOV 2010
     Route: 065
  17. AMLODIPINE [Concomitant]
     Active Substance: AMLODIPINE BESYLATE
     Route: 065
  18. TORSEMIDE. [Concomitant]
     Active Substance: TORSEMIDE
     Route: 065
  19. OCUVITE [Concomitant]
     Active Substance: VITAMINS
     Route: 065
  20. BONIVA [Suspect]
     Active Substance: IBANDRONATE SODIUM
     Indication: OSTEOPOROSIS
     Route: 042
     Dates: start: 20071218, end: 20100215
  21. CITRACAL [Concomitant]
     Active Substance: CALCIUM CITRATE
     Dosage: FEQUENCY: QD, THERAPY DATES:17 NOV 2009,15 FEB 2010,11 MAY 2010
     Route: 065
     Dates: start: 20090707, end: 20100511
  22. CITRACAL [Concomitant]
     Active Substance: CALCIUM CITRATE
     Dosage: FREQUENCY: QD, THERAPY DATES:17 NOV 2009,15 FEB 2010,11 MAY 2010
     Route: 065
     Dates: start: 20090707, end: 20100511
  23. CITRACAL [Concomitant]
     Active Substance: CALCIUM CITRATE
     Dosage: APY DATES: 21 JUNE 2010,21 JUL 2010,3 NOV 2010
     Route: 065
  24. AVAPRO [Concomitant]
     Active Substance: IRBESARTAN
     Route: 065
     Dates: start: 20090707, end: 20110203
  25. COLACE [Concomitant]
     Active Substance: DOCUSATE SODIUM
     Route: 048
  26. LIPITOR [Concomitant]
     Active Substance: ATORVASTATIN CALCIUM
     Dosage: FREQUENCY: QHS,THERAPY DATES:17 NOV 2009,15 FEB 2010,11 MAY 2010,21 JUNE 2010,21 JUL 2010,3 NOV 2010
     Route: 065
     Dates: start: 20090707, end: 20110203
  27. LIDODERM [Concomitant]
     Active Substance: LIDOCAINE
     Route: 065
  28. VICODIN [Concomitant]
     Active Substance: ACETAMINOPHEN\HYDROCODONE BITARTRATE
     Route: 065

REACTIONS (1)
  - Osteonecrosis of jaw [Recovering/Resolving]

NARRATIVE: CASE EVENT DATE: 200912
